FAERS Safety Report 13881161 (Version 1)
Quarter: 2017Q3

REPORT INFORMATION
  Report Type: Report from Study
  Country: US (occurrence: US)
  Receive Date: 20170818
  Receipt Date: 20170818
  Transmission Date: 20171127
  Serious: Yes (Death, Hospitalization)
  Sender: FDA-Public Use
  Company Number: US-JNJFOC-20170724037

PATIENT
  Age: 87 Year
  Sex: Female

DRUGS (6)
  1. MELATONIN [Concomitant]
     Active Substance: MELATONIN
  2. IMBRUVICA [Suspect]
     Active Substance: IBRUTINIB
     Indication: B-CELL SMALL LYMPHOCYTIC LYMPHOMA
     Route: 048
     Dates: start: 201706
  3. MULTIVITAMINS [Concomitant]
     Active Substance: VITAMINS
  4. ALLOPURINOL. [Concomitant]
     Active Substance: ALLOPURINOL
  5. CALCIUM W/COLECALCIFEROL [Concomitant]
     Active Substance: CALCIUM\CHOLECALCIFEROL
  6. LOPERAMIDE [Concomitant]
     Active Substance: LOPERAMIDE

REACTIONS (4)
  - Off label use [Unknown]
  - Product use issue [Unknown]
  - Haemorrhage intracranial [Fatal]
  - Lymphocyte count abnormal [Unknown]

NARRATIVE: CASE EVENT DATE: 201706
